FAERS Safety Report 11994104 (Version 1)
Quarter: 2016Q1

REPORT INFORMATION
  Report Type: Spontaneous
  Country: US (occurrence: US)
  Receive Date: 20160203
  Receipt Date: 20160203
  Transmission Date: 20160526
  Serious: No
  Sender: FDA-Public Use
  Company Number: US-UCBSA-2015027758

PATIENT

DRUGS (7)
  1. ATIVAN [Concomitant]
     Active Substance: LORAZEPAM
     Indication: DEPRESSION
  2. ATIVAN [Concomitant]
     Active Substance: LORAZEPAM
     Indication: ANXIETY
  3. KEPPRA [Suspect]
     Active Substance: LEVETIRACETAM
     Indication: DEPRESSION
  4. LEXAPRO [Concomitant]
     Active Substance: ESCITALOPRAM OXALATE
     Indication: ANXIETY
  5. ATIVAN [Concomitant]
     Active Substance: LORAZEPAM
     Indication: OFF LABEL USE
  6. KEPPRA [Suspect]
     Active Substance: LEVETIRACETAM
     Indication: ANXIETY
  7. LEXAPRO [Concomitant]
     Active Substance: ESCITALOPRAM OXALATE
     Indication: DEPRESSION

REACTIONS (1)
  - No adverse event [Unknown]
